FAERS Safety Report 5228392-4 (Version None)
Quarter: 2007Q1

REPORT INFORMATION
  Report Type: 
  Country: None (occurrence: None)
  Receive Date: 20070131
  Receipt Date: 20070119
  Transmission Date: 20070707
  Serious: Yes (Hospitalization)
  Sender: FDA-Public Use
  Company Number: DISFR-07-0075

PATIENT
  Age: 56 Year
  Sex: Female

DRUGS (10)
  1. DIPRIVAN [Suspect]
     Indication: ANAESTHESIA
     Dosage: INTRAVENOUS
     Route: 042
     Dates: start: 20061115, end: 20061115
  2. MOPRAL (OMEPRAZOLE SODIUM) [Suspect]
     Indication: ANAESTHESIA
     Dosage: 40 MG (QD), INTRAVENOUS
     Route: 042
     Dates: start: 20061115
  3. DI-ANTALVIC (APOREX) [Suspect]
     Indication: ANAESTHESIA
     Dosage: 2 DF (TID), ORAL
     Route: 048
     Dates: end: 20061129
  4. MYOLASTAN (TETRAZEPAM) [Suspect]
     Indication: ANAESTHESIA
     Dosage: 1 DF (QD), ORAL
     Route: 048
     Dates: end: 20061129
  5. AUGMENTIN '125' [Suspect]
     Indication: ANAESTHESIA
     Dosage: (BID), INTRAVENOUS
     Route: 042
     Dates: start: 20061115, end: 20061115
  6. PERFALGAN (PARACETAMOL) [Suspect]
     Indication: ANAESTHESIA
     Dosage: 1 GM (QID), INTRAVENOUS
     Route: 042
  7. MIDAZOLAM HCL [Suspect]
     Indication: ANAESTHESIA
     Dosage: (ONCE)
     Dates: start: 20061115, end: 20061115
  8. SUFENTA [Suspect]
     Indication: ANAESTHESIA
     Dosage: (ONCE)
     Dates: start: 20061115, end: 20061115
  9. NIMBEX [Suspect]
     Indication: ANAESTHESIA
     Dosage: (ONCE)
     Dates: start: 20061115, end: 20061115
  10. LOVENOX [Suspect]
     Indication: ANAESTHESIA
     Dates: start: 20061115

REACTIONS (3)
  - CONDITION AGGRAVATED [None]
  - CUTANEOUS LUPUS ERYTHEMATOSUS [None]
  - ERYTHEMA MULTIFORME [None]
